FAERS Safety Report 20843885 (Version 1)
Quarter: 2022Q2

REPORT INFORMATION
  Report Type: Spontaneous
  Country: US (occurrence: None)
  Receive Date: 20220517
  Receipt Date: 20220517
  Transmission Date: 20220721
  Serious: Yes (Hospitalization)
  Sender: FDA-Public Use
  Company Number: None

PATIENT
  Age: 11 Year
  Sex: Female

DRUGS (9)
  1. SILDENAFIL [Suspect]
     Active Substance: SILDENAFIL
     Indication: Cystic fibrosis
     Dosage: TAKE 2ML BY OTHER THREE TIMES DAILY - MIX BEFORE USE. REFRIGERATE AFTER MIXING. DISCARD 60 DAYS AFTE
     Route: 048
     Dates: start: 20220406
  2. ALBUTEROL SULFATE [Concomitant]
     Active Substance: ALBUTEROL SULFATE
  3. ATROVENT HFA [Concomitant]
     Active Substance: IPRATROPIUM BROMIDE
  4. CETIRIZINE HCL [Concomitant]
     Active Substance: CETIRIZINE HYDROCHLORIDE
  5. CETIRIZINE HCL CHILDRENS [Concomitant]
  6. FLOVENT HFA [Concomitant]
     Active Substance: FLUTICASONE PROPIONATE
  7. M-PAP [Concomitant]
     Active Substance: ACETAMINOPHEN
  8. MONTELUKAST SODIUM [Concomitant]
     Active Substance: MONTELUKAST SODIUM
  9. SODIUM CHLORIDE [Concomitant]
     Active Substance: SODIUM CHLORIDE

REACTIONS (3)
  - Pneumonia [None]
  - Lung disorder [None]
  - Therapy change [None]

NARRATIVE: CASE EVENT DATE: 20220402
